FAERS Safety Report 5039540-3 (Version None)
Quarter: 2006Q2

REPORT INFORMATION
  Report Type: 
  Country: None (occurrence: None)
  Receive Date: 20060601
  Receipt Date: 20060117
  Transmission Date: 20061013
  Serious: No
  Sender: FDA-Public Use
  Company Number: 2006PV007200

PATIENT
  Age: 68 Year
  Sex: Female
  Weight: 93.8946 kg

DRUGS (5)
  1. BYETTA [Suspect]
     Indication: DIABETES MELLITUS NON-INSULIN-DEPENDENT
     Dosage: SEE IMAGE
     Route: 058
     Dates: start: 20051212, end: 20060111
  2. BYETTA [Suspect]
     Indication: DIABETES MELLITUS NON-INSULIN-DEPENDENT
     Dosage: SEE IMAGE
     Route: 058
     Dates: start: 20060112
  3. AMARYL [Suspect]
     Indication: DIABETES MELLITUS NON-INSULIN-DEPENDENT
     Dosage: 2 MG; QD; PO
     Route: 048
     Dates: start: 20060103, end: 20060201
  4. HUMALOG INSULIN 75/25 [Concomitant]
  5. GLUCOTROL [Concomitant]

REACTIONS (7)
  - ANOREXIA [None]
  - DRUG INEFFECTIVE [None]
  - DYSPEPSIA [None]
  - GASTRITIS [None]
  - NAUSEA [None]
  - VOMITING [None]
  - WEIGHT DECREASED [None]
